FAERS Safety Report 4507679-4 (Version None)
Quarter: 2004Q4

REPORT INFORMATION
  Report Type: 
  Country: None (occurrence: None)
  Receive Date: 20041118
  Receipt Date: 20041105
  Transmission Date: 20050328
  Serious: Yes (Hospitalization, Other)
  Sender: FDA-Public Use
  Company Number: 2004089818

PATIENT
  Age: 15 Day
  Sex: Male

DRUGS (3)
  1. ZITHROMAX [Suspect]
     Indication: PHARYNGOLARYNGEAL PAIN
  2. ENOXAPARIN SODIUM [Concomitant]
  3. ASPIRIN [Concomitant]

REACTIONS (7)
  - CONGENITAL ATRIAL SEPTAL DEFECT [None]
  - CONGENITAL INTESTINAL MALFORMATION [None]
  - CONGENITAL MEGAURETER [None]
  - DRUG EXPOSURE DURING PREGNANCY [None]
  - GASTROOESOPHAGEAL REFLUX DISEASE [None]
  - PYELONEPHRITIS [None]
  - SEPSIS [None]
